FAERS Safety Report 7406210-3 (Version None)
Quarter: 2011Q2

REPORT INFORMATION
  Report Type: 
  Country: None (occurrence: None)
  Receive Date: 20110411
  Receipt Date: 20110404
  Transmission Date: 20111010
  Serious: Yes (Other)
  Sender: FDA-Public Use
  Company Number: GB-ABBOTT-09P-167-0589759-00

PATIENT
  Sex: Female
  Weight: 71 kg

DRUGS (11)
  1. METHOTREXATE [Concomitant]
     Indication: PRODUCT USED FOR UNKNOWN INDICATION
     Dosage: 25 MG DAILY
     Dates: start: 20050126
  2. ADCAL D3 [Concomitant]
     Indication: PRODUCT USED FOR UNKNOWN INDICATION
     Dates: start: 20050126
  3. FOLIC ACID [Concomitant]
     Indication: PRODUCT USED FOR UNKNOWN INDICATION
     Dosage: 5MG DAILY
     Dates: start: 20050126
  4. FRUSEMIDE [Concomitant]
     Indication: PRODUCT USED FOR UNKNOWN INDICATION
     Dates: start: 20050126
  5. HYDROXYCHLOROQUINE SULFATE [Concomitant]
     Indication: PRODUCT USED FOR UNKNOWN INDICATION
     Dosage: 200 MG DAILY
     Dates: start: 20050126
  6. RISEDRONATE [Concomitant]
     Indication: PRODUCT USED FOR UNKNOWN INDICATION
     Dosage: 35 MG DAILY
  7. CALCIUM +VIT D [Concomitant]
     Indication: PRODUCT USED FOR UNKNOWN INDICATION
     Dosage: 1 DAILY
  8. HUMIRA [Suspect]
     Indication: RHEUMATOID ARTHRITIS
     Route: 058
     Dates: start: 20041222
  9. ACETAMINOPHEN [Concomitant]
     Indication: PRODUCT USED FOR UNKNOWN INDICATION
     Dates: start: 20050126
  10. METHOTREXATE [Concomitant]
  11. CELECOXIB [Concomitant]
     Indication: PRODUCT USED FOR UNKNOWN INDICATION
     Dates: start: 20050126

REACTIONS (10)
  - MUSCULOSKELETAL DISCOMFORT [None]
  - MUSCLE TIGHTNESS [None]
  - COELIAC DISEASE [None]
  - DYSPNOEA [None]
  - LUNG NEOPLASM [None]
  - RHEUMATOID ARTHRITIS [None]
  - MUSCULOSKELETAL STIFFNESS [None]
  - SOFT TISSUE DISORDER [None]
  - FALL [None]
  - WEIGHT INCREASED [None]
